FAERS Safety Report 6905619-1 (Version None)
Quarter: 2010Q3

REPORT INFORMATION
  Report Type: 
  Country: None (occurrence: None)
  Receive Date: 20100804
  Receipt Date: 20100727
  Transmission Date: 20110219
  Serious: Yes (Other)
  Sender: FDA-Public Use
  Company Number: US-NOVOPROD-312048

PATIENT
  Sex: Male
  Weight: 57.7 kg

DRUGS (7)
  1. NORDITROPIN [Suspect]
     Indication: GROWTH HORMONE DEFICIENCY
     Dosage: 2.6 MG, QD
     Route: 058
     Dates: start: 20070731
  2. ADVAIR DISKUS 100/50 [Concomitant]
     Indication: ASTHMA
     Dosage: UNK
     Route: 055
  3. CLARINEX                           /01202601/ [Concomitant]
     Indication: RHINITIS ALLERGIC
     Dosage: UNK
     Route: 048
  4. SINGULAIR [Concomitant]
     Indication: RHINITIS ALLERGIC
     Dosage: UNK
     Route: 048
  5. NEXIUM [Concomitant]
     Indication: PRODUCT USED FOR UNKNOWN INDICATION
     Dosage: UNK
     Route: 048
  6. NASACORT [Concomitant]
     Indication: RHINITIS ALLERGIC
     Dosage: UNK
  7. MINOCIN [Concomitant]
     Indication: PRODUCT USED FOR UNKNOWN INDICATION
     Dosage: UNK

REACTIONS (2)
  - BONE CYST [None]
  - BONE DISORDER [None]
